FAERS Safety Report 11128707 (Version 2)
Quarter: 2015Q3

REPORT INFORMATION
  Report Type: Report from Study
  Country: US (occurrence: US)
  Receive Date: 20150521
  Receipt Date: 20150721
  Transmission Date: 20151125
  Serious: Yes (Other)
  Sender: FDA-Public Use
  Company Number: US-SA-2014SA099282

PATIENT
  Age: 54 Year
  Sex: Female

DRUGS (1)
  1. AUBAGIO [Suspect]
     Active Substance: TERIFLUNOMIDE
     Indication: RELAPSING-REMITTING MULTIPLE SCLEROSIS
     Route: 048
     Dates: start: 20140710, end: 20150601

REACTIONS (13)
  - Feeling abnormal [Unknown]
  - Hypoaesthesia [Unknown]
  - Alopecia [Unknown]
  - Chest pain [Unknown]
  - Pain in extremity [Unknown]
  - Decreased appetite [Unknown]
  - Nasopharyngitis [Not Recovered/Not Resolved]
  - Burning sensation [Unknown]
  - Headache [Unknown]
  - Abdominal discomfort [Unknown]
  - Hypoaesthesia [Unknown]
  - Walking aid user [Unknown]
  - Paraesthesia [Unknown]

NARRATIVE: CASE EVENT DATE: 201412
